FAERS Safety Report 16889715 (Version 2)
Quarter: 2019Q4

REPORT INFORMATION
  Report Type: Spontaneous
  Country: US (occurrence: US)
  Receive Date: 20191007
  Receipt Date: 20191010
  Transmission Date: 20200122
  Serious: Yes (Other)
  Sender: FDA-Public Use
  Company Number: US-TORRENT-00009287

PATIENT
  Age: 70 Year
  Sex: Female
  Weight: 58 kg

DRUGS (1)
  1. LOSARTAN. [Suspect]
     Active Substance: LOSARTAN
     Indication: HYPERTENSION
     Dosage: STARTED 10 YEARS AGO
     Dates: start: 2009

REACTIONS (3)
  - Breast cancer [Unknown]
  - Cancer surgery [Unknown]
  - Metastases to bone [Unknown]

NARRATIVE: CASE EVENT DATE: 201309
